FAERS Safety Report 9325737 (Version 1)
Quarter: 2013Q2

REPORT INFORMATION
  Report Type: Spontaneous
  Country: US (occurrence: None)
  Receive Date: 20130603
  Receipt Date: 20130603
  Transmission Date: 20140414
  Serious: Yes (Death, Hospitalization)
  Sender: FDA-Public Use
  Company Number: None

PATIENT
  Age: 81 Year
  Sex: Male
  Weight: 74.84 kg

DRUGS (2)
  1. METOPROLOL [Suspect]
     Indication: CARDIAC FAILURE
     Dosage: DAILY MOUTH
     Route: 048
  2. WARFARIN [Suspect]
     Indication: CEREBROVASCULAR ACCIDENT

REACTIONS (4)
  - Cerebrovascular accident [None]
  - Cerebral haemorrhage [None]
  - International normalised ratio increased [None]
  - Drug intolerance [None]
